FAERS Safety Report 22179787 (Version 1)
Quarter: 2023Q2

REPORT INFORMATION
  Report Type: Spontaneous
  Country: GB (occurrence: GB)
  Receive Date: 20230406
  Receipt Date: 20230406
  Transmission Date: 20230722
  Serious: Yes (Other)
  Sender: FDA-Public Use
  Company Number: GB-TAKEDA-2019TUS072526

PATIENT
  Sex: Male

DRUGS (17)
  1. XARELTO [Suspect]
     Active Substance: RIVAROXABAN
     Indication: Transient ischaemic attack
     Dosage: 20 MG, QD
     Route: 048
     Dates: start: 20151019
  2. VEDOLIZUMAB [Suspect]
     Active Substance: VEDOLIZUMAB
     Indication: Inflammatory bowel disease
     Dosage: 200, UNK, UNK
     Route: 042
     Dates: start: 20160808, end: 20170817
  3. VEDOLIZUMAB [Suspect]
     Active Substance: VEDOLIZUMAB
     Indication: Inflammatory bowel disease
     Dosage: 300 MG
     Route: 042
     Dates: start: 20160808, end: 20170817
  4. LOSARTAN [Suspect]
     Active Substance: LOSARTAN
     Indication: Cardiac disorder
     Dosage: 50 MG, QD
     Route: 065
  5. LANSOPRAZOLE [Suspect]
     Active Substance: LANSOPRAZOLE
     Indication: Gastrointestinal disorder
     Dosage: 30 MG, QD
     Route: 048
  6. CHOLECALCIFEROL [Suspect]
     Active Substance: CHOLECALCIFEROL
     Indication: Vitamin D deficiency
     Dosage: UNK UNK, UNK
     Route: 048
  7. METFORMIN [Suspect]
     Active Substance: METFORMIN HYDROCHLORIDE
     Indication: Diabetes mellitus
     Dosage: 1000 MG, QD
     Route: 065
  8. AMLODIPINE [Suspect]
     Active Substance: AMLODIPINE BESYLATE
     Indication: Product used for unknown indication
     Dosage: UNK
     Route: 065
  9. ATORVASTATIN [Suspect]
     Active Substance: ATORVASTATIN
     Indication: Blood cholesterol decreased
     Dosage: 40 MILLIGRAM
     Route: 048
  10. BISOPROLOL [Concomitant]
     Active Substance: BISOPROLOL
     Indication: Cardiac disorder
     Dosage: 1.25 MILLIGRAM, QD
     Route: 048
  11. FLUOROURACIL [Concomitant]
     Active Substance: FLUOROURACIL
     Indication: Skin lesion
     Dosage: UNK
     Route: 061
     Dates: start: 20160808
  12. FLUOROURACIL [Concomitant]
     Active Substance: FLUOROURACIL
     Indication: Inflammatory bowel disease
     Route: 061
  13. FLUOROURACIL [Concomitant]
     Active Substance: FLUOROURACIL
     Indication: Skin lesion
     Route: 061
  14. FLUOROURACIL [Concomitant]
     Active Substance: FLUOROURACIL
     Indication: Skin lesion
     Route: 061
  15. FLUOROURACIL [Concomitant]
     Active Substance: FLUOROURACIL
     Indication: Skin lesion
     Route: 061
  16. FUSIDATE SODIUM\HYDROCORTISONE ACETATE [Concomitant]
     Active Substance: FUSIDATE SODIUM\HYDROCORTISONE ACETATE
     Indication: Skin lesion
     Route: 061
  17. FUSIDATE SODIUM\HYDROCORTISONE ACETATE [Concomitant]
     Active Substance: FUSIDATE SODIUM\HYDROCORTISONE ACETATE
     Indication: Skin lesion
     Dosage: UNK
     Route: 061

REACTIONS (2)
  - Basal cell carcinoma [Recovered/Resolved]
  - Benign neoplasm of skin [Recovered/Resolved]

NARRATIVE: CASE EVENT DATE: 20171101
